FAERS Safety Report 15553479 (Version 1)
Quarter: 2018Q4

REPORT INFORMATION
  Report Type: Report from Study
  Country: US (occurrence: US)
  Receive Date: 20181026
  Receipt Date: 20181026
  Transmission Date: 20190205
  Serious: No
  Sender: FDA-Public Use
  Company Number: US-ROCHE-2186206

PATIENT
  Age: 39 Year
  Sex: Female

DRUGS (2)
  1. OCREVUS [Suspect]
     Active Substance: OCRELIZUMAB
     Indication: RELAPSING MULTIPLE SCLEROSIS
     Route: 065
  2. OCREVUS [Suspect]
     Active Substance: OCRELIZUMAB
     Dosage: 600 MG DOSE RECEIVED ON 14/OCT/2018.
     Route: 065
     Dates: start: 20170928

REACTIONS (4)
  - Malaise [Not Recovered/Not Resolved]
  - Hot flush [Unknown]
  - Influenza [Unknown]
  - Palpitations [Unknown]

NARRATIVE: CASE EVENT DATE: 20181014
